FAERS Safety Report 16838091 (Version 11)
Quarter: 2020Q3

REPORT INFORMATION
  Report Type: Report from Study
  Country: US (occurrence: US)
  Receive Date: 20190923
  Receipt Date: 20200929
  Transmission Date: 20201102
  Serious: Yes (Hospitalization, Other)
  Sender: FDA-Public Use
  Company Number: US-B.I. PHARMACEUTICALS,INC./RIDGEFIELD-2019-BI-028038

PATIENT
  Age: 83 Year
  Sex: Male

DRUGS (7)
  1. OFEV [Suspect]
     Active Substance: NINTEDANIB
     Indication: IDIOPATHIC PULMONARY FIBROSIS
     Dosage: 150MG TWICE DAILY WITH FOOD
     Route: 048
     Dates: start: 20190617, end: 20190702
  2. OFEV [Suspect]
     Active Substance: NINTEDANIB
     Dosage: 12 HOURS APART WITH FOOD
     Route: 048
     Dates: start: 20190911
  3. OFEV [Suspect]
     Active Substance: NINTEDANIB
     Dosage: 12 HOURS APART WITH FOOD
     Route: 048
     Dates: start: 20191004
  4. OFEV [Suspect]
     Active Substance: NINTEDANIB
  5. OFEV [Suspect]
     Active Substance: NINTEDANIB
     Route: 048
     Dates: end: 20190926
  6. OFEV [Suspect]
     Active Substance: NINTEDANIB
  7. OFEV [Suspect]
     Active Substance: NINTEDANIB
     Route: 048
     Dates: end: 20200628

REACTIONS (19)
  - Hypertension [Not Recovered/Not Resolved]
  - Abdominal discomfort [Recovered/Resolved]
  - Fistula [Not Recovered/Not Resolved]
  - Diarrhoea [Not Recovered/Not Resolved]
  - Hepatic enzyme increased [Not Recovered/Not Resolved]
  - Fatigue [Unknown]
  - Incorrect product administration duration [Unknown]
  - Diarrhoea [Recovered/Resolved]
  - Gastric disorder [Unknown]
  - Flatulence [Not Recovered/Not Resolved]
  - Malaise [Unknown]
  - Dyspnoea exertional [Unknown]
  - Asthenia [Unknown]
  - Enzyme level increased [Unknown]
  - Dizziness [Not Recovered/Not Resolved]
  - Decreased appetite [Not Recovered/Not Resolved]
  - Weight decreased [Not Recovered/Not Resolved]
  - Protein deficiency [Not Recovered/Not Resolved]
  - Diarrhoea [Unknown]
